FAERS Safety Report 9664356 (Version 2)
Quarter: 2014Q2

REPORT INFORMATION
  Report Type: Spontaneous
  Country: US (occurrence: US)
  Receive Date: 20131101
  Receipt Date: 20140501
  Transmission Date: 20141212
  Serious: Yes (Hospitalization)
  Sender: FDA-Public Use
  Company Number: US-B.I. PHARMACEUTICALS,INC./RIDGEFIELD-2013-BI-34350BP

PATIENT
  Sex: Male
  Weight: 99.79 kg

DRUGS (5)
  1. PRADAXA [Suspect]
     Indication: ATRIAL FIBRILLATION
     Route: 048
     Dates: start: 20111029, end: 20121115
  2. METOPROLOL TARTRATE [Concomitant]
     Route: 048
     Dates: start: 200308, end: 2012
  3. CRESTOR [Concomitant]
     Route: 048
     Dates: start: 200308, end: 2012
  4. DILTIAZEM [Concomitant]
     Route: 048
     Dates: start: 200308, end: 2012
  5. ALEVE [Concomitant]
     Route: 065

REACTIONS (2)
  - Gastrointestinal haemorrhage [Unknown]
  - Haemorrhagic anaemia [Unknown]
